FAERS Safety Report 23969923 (Version 1)
Quarter: 2024Q2

REPORT INFORMATION
  Report Type: Spontaneous
  Country: US (occurrence: US)
  Receive Date: 20240613
  Receipt Date: 20240613
  Transmission Date: 20240716
  Serious: No
  Sender: FDA-Public Use
  Company Number: US-BRISTOL-MYERS SQUIBB COMPANY-2024-095266

PATIENT
  Age: 56 Year
  Sex: Male

DRUGS (1)
  1. VIDAZA [Suspect]
     Active Substance: AZACITIDINE
     Indication: Myelodysplastic syndrome
     Dosage: STRENGTH: 100 MG VIAL;?FREQUENCY: DAYS 1-5 OF A 28-DAY CYCLE
     Route: 042

REACTIONS (2)
  - Treatment noncompliance [Unknown]
  - Off label use [Unknown]
